FAERS Safety Report 22661385 (Version 1)
Quarter: 2023Q2

REPORT INFORMATION
  Report Type: Spontaneous
  Country: LT (occurrence: None)
  Receive Date: 20230630
  Receipt Date: 20230630
  Transmission Date: 20230721
  Serious: Yes (Life-Threatening, Hospitalization)
  Sender: FDA-Public Use
  Company Number: 2023A148050

PATIENT
  Age: 35 Year
  Sex: Female
  Weight: 69 kg

DRUGS (3)
  1. QUETIAPINE [Suspect]
     Active Substance: QUETIAPINE
     Indication: Product used for unknown indication
     Dosage: ONCE/SINGLE ADMINISTRATION
     Dates: start: 20230614, end: 20230614
  2. VENLAFAXINE HYDROCHLORIDE [Suspect]
     Active Substance: VENLAFAXINE HYDROCHLORIDE
     Indication: Product used for unknown indication
     Dosage: ONCE/SINGLE ADMINISTRATION
     Dates: start: 20230614, end: 20230614
  3. PAROXETINE [Suspect]
     Active Substance: PAROXETINE
     Indication: Product used for unknown indication
     Dosage: ONCE/SINGLE ADMINISTRATION
     Dates: start: 20230614, end: 20230614

REACTIONS (4)
  - Suicide attempt [Not Recovered/Not Resolved]
  - Overdose [Not Recovered/Not Resolved]
  - Somnolence [Not Recovered/Not Resolved]
  - Hypotension [Not Recovered/Not Resolved]

NARRATIVE: CASE EVENT DATE: 20230615
